FAERS Safety Report 5234009-5 (Version None)
Quarter: 2007Q1

REPORT INFORMATION
  Report Type: 
  Country: None (occurrence: None)
  Receive Date: 20070206
  Receipt Date: 20070123
  Transmission Date: 20070707
  Serious: Yes (Hospitalization)
  Sender: FDA-Public Use
  Company Number: 30829

PATIENT
  Age: 46 Year
  Sex: Male

DRUGS (6)
  1. FLECAINIDE ACETATE [Suspect]
     Dosage: 200 MG (100 MG, 2 IN 1 DAY (S)) ORAL
     Route: 048
     Dates: start: 19850101
  2. DIGOXIN [Suspect]
     Dosage: 0.25 MG (0.25 MG, 1 IN 1 DAY (S)) ORAL
     Route: 048
     Dates: start: 20061201, end: 20061204
  3. LASIX [Suspect]
     Dosage: SEE IMAGE
     Dates: start: 20061130, end: 20061201
  4. LASIX [Suspect]
     Dosage: SEE IMAGE
     Dates: start: 20061201, end: 20061204
  5. SECTRAL [Suspect]
     Dosage: 200 MG (200 MG, 1 IN 1 DAY (S)) ORAL
     Route: 048
     Dates: start: 20061201
  6. SINTROM [Suspect]
     Dosage: 2 MG (2 MG) ORAL
     Route: 048

REACTIONS (2)
  - NEUTROPENIA [None]
  - WHITE BLOOD CELL COUNT DECREASED [None]
